FAERS Safety Report 6209442-5 (Version None)
Quarter: 2009Q2

REPORT INFORMATION
  Report Type: 
  Country: None (occurrence: None)
  Receive Date: 20090601
  Receipt Date: 20090521
  Transmission Date: 20091009
  Serious: Yes (Hospitalization)
  Sender: FDA-Public Use
  Company Number: TR-ROCHE-605203

PATIENT
  Sex: Female
  Weight: 47 kg

DRUGS (3)
  1. METHOXY POLYETHYLENE GLYCOL-EPOETIN BETA [Suspect]
     Dosage: FORMULATION: PFS DATE OF LAST DOSE PRIOR TO SAE: 3 DEC 2008
     Route: 058
     Dates: start: 20081203
  2. VALSARTAN [Concomitant]
     Dates: start: 20050101
  3. CALCIUM ACETATE [Concomitant]
     Dates: start: 20050101

REACTIONS (1)
  - GASTROENTERITIS [None]
